FAERS Safety Report 17960665 (Version 3)
Quarter: 2020Q3

REPORT INFORMATION
  Report Type: Spontaneous
  Country: PL (occurrence: PL)
  Receive Date: 20200630
  Receipt Date: 20200718
  Transmission Date: 20201103
  Serious: Yes (Death)
  Sender: FDA-Public Use
  Company Number: NVSC2020PL181044

PATIENT
  Age: 68 Year
  Sex: Female

DRUGS (4)
  1. ATEZOLIZUMAB. [Suspect]
     Active Substance: ATEZOLIZUMAB
     Indication: SMALL CELL LUNG CANCER
     Dosage: 120 MG, Q3W
     Route: 042
     Dates: end: 201806
  2. CARBOPLATIN. [Suspect]
     Active Substance: CARBOPLATIN
     Indication: SMALL CELL LUNG CANCER
     Dosage: 4 CYCLICAL, CYCLIC, ON DAY 1 AUC 5 EVERY THREE WEEKS)
     Route: 065
  3. ETOPOSIDE. [Suspect]
     Active Substance: ETOPOSIDE
     Indication: SMALL CELL LUNG CANCER
     Dosage: 120 MG/M2 (4CYCLES), OVER THREE SUCCESSIVE DAYS, EVERY THREE WEEKS
     Route: 065
  4. ATEZOLIZUMAB. [Suspect]
     Active Substance: ATEZOLIZUMAB
     Dosage: 102 MG, TIW, 32 CYCLICAL
     Route: 065
     Dates: end: 201806

REACTIONS (11)
  - Anxiety [Fatal]
  - Vomiting [Unknown]
  - Condition aggravated [Fatal]
  - Hypokalaemia [Fatal]
  - Hypothyroidism [Fatal]
  - Oedema peripheral [Fatal]
  - Lung neoplasm malignant [Fatal]
  - Blood alkaline phosphatase increased [Fatal]
  - Neutropenia [Fatal]
  - Anaemia [Fatal]
  - Arthralgia [Fatal]
